FAERS Safety Report 10723137 (Version 3)
Quarter: 2015Q2

REPORT INFORMATION
  Report Type: Spontaneous
  Country: IT (occurrence: IT)
  Receive Date: 20150120
  Receipt Date: 20150417
  Transmission Date: 20150821
  Serious: Yes (Other)
  Sender: FDA-Public Use
  Company Number: IT-ROCHE-1523235

PATIENT
  Age: 68 Year
  Sex: Female

DRUGS (7)
  1. GLUCOPHAGE [Concomitant]
     Active Substance: METFORMIN HYDROCHLORIDE
     Dosage: 50 X 1000 MG TABLETS
     Route: 048
  2. PROVISACOR [Concomitant]
     Active Substance: ROSUVASTATIN
     Dosage: 7 X 20 MG FILM-COATED TABLET
     Route: 048
  3. MEDROL [Concomitant]
     Active Substance: METHYLPREDNISOLONE
     Dosage: ^4 MG TABLETS^ 30 TABLETS
     Route: 048
  4. DIBASE [Concomitant]
     Active Substance: CHOLECALCIFEROL
     Dosage: ^25,000 IU/2.5 ML ORAL SOLUTION^ 1 X 2.5 ML VIAL
     Route: 048
  5. DIFMETRE [Concomitant]
     Active Substance: CAFFEINE\INDOMETHACIN\PROCHLORPERAZINE MALEATE
     Dosage: ^COATED TABLETS^ 20 TABLETS
     Route: 048
  6. ORUDIS [Concomitant]
     Active Substance: KETOPROFEN
     Dosage: ^50 MG HARD CAPSULES^ 30 CAPSULES
     Route: 048
  7. ROACTEMRA [Suspect]
     Active Substance: TOCILIZUMAB
     Indication: RHEUMATOID ARTHRITIS
     Dosage: 20 MG/ML CONCENTRATE FOR SOLUTION FOR INFUSION
     Route: 042
     Dates: start: 20090601, end: 20141216

REACTIONS (3)
  - Retinal artery occlusion [Recovered/Resolved with Sequelae]
  - Vision blurred [Recovered/Resolved with Sequelae]
  - Visual acuity reduced [Recovered/Resolved with Sequelae]

NARRATIVE: CASE EVENT DATE: 20141216
